FAERS Safety Report 19746413 (Version 9)
Quarter: 2022Q3

REPORT INFORMATION
  Report Type: Report from Study
  Country: US (occurrence: US)
  Receive Date: 20210825
  Receipt Date: 20220907
  Transmission Date: 20221027
  Serious: No
  Sender: FDA-Public Use
  Company Number: NVSC2021US191417

PATIENT
  Sex: Female
  Weight: 65.306 kg

DRUGS (4)
  1. TREPROSTINIL [Suspect]
     Active Substance: TREPROSTINIL
     Indication: Pulmonary arterial hypertension
     Dosage: 143.4 NG/KG/MIN
     Route: 065
     Dates: start: 20210628, end: 20210818
  2. TREPROSTINIL [Suspect]
     Active Substance: TREPROSTINIL
     Dosage: 143.4 NG/KG/MIN
     Route: 065
  3. REVATIO [Concomitant]
     Active Substance: SILDENAFIL CITRATE
     Indication: Product used for unknown indication
     Dosage: UNK
     Route: 065
  4. OPSUMIT [Concomitant]
     Active Substance: MACITENTAN
     Indication: Product used for unknown indication
     Dosage: UNK
     Route: 065

REACTIONS (15)
  - Palpitations [Unknown]
  - Rhinorrhoea [Not Recovered/Not Resolved]
  - Hypersensitivity [Not Recovered/Not Resolved]
  - Cough [Not Recovered/Not Resolved]
  - Throat irritation [Not Recovered/Not Resolved]
  - Lacrimation increased [Not Recovered/Not Resolved]
  - Nasal congestion [Unknown]
  - Respiratory tract congestion [Recovered/Resolved]
  - Feeling abnormal [Unknown]
  - Device alarm issue [Unknown]
  - Device infusion issue [Unknown]
  - Fatigue [Unknown]
  - Dyspnoea [Unknown]
  - Infusion site pain [Unknown]
  - Drug ineffective [Unknown]
